FAERS Safety Report 6299290-2 (Version None)
Quarter: 2009Q3

REPORT INFORMATION
  Report Type: 
  Country: None (occurrence: None)
  Receive Date: 20090806
  Receipt Date: 20090730
  Transmission Date: 20100115
  Serious: Yes (Other)
  Sender: FDA-Public Use
  Company Number: US-GILEAD-2009-0021071

PATIENT
  Age: 34 Year
  Sex: Female

DRUGS (3)
  1. TRUVADA [Suspect]
     Indication: HIV INFECTION
     Dosage: 200/300
     Route: 048
     Dates: start: 20060221
  2. NEVIRAPINE [Concomitant]
     Route: 048
     Dates: start: 19990601, end: 20080708
  3. LOPINAVIR AND RITONAVIR [Concomitant]
     Route: 048
     Dates: start: 20080708

REACTIONS (2)
  - ABORTION SPONTANEOUS [None]
  - ULTRASOUND ANTENATAL SCREEN ABNORMAL [None]
